FAERS Safety Report 5956418-9 (Version None)
Quarter: 2008Q4

REPORT INFORMATION
  Report Type: 
  Country: None (occurrence: None)
  Receive Date: 20081114
  Receipt Date: 20081114
  Transmission Date: 20090506
  Serious: Yes (Hospitalization)
  Sender: FDA-Public Use
  Company Number: None

PATIENT
  Sex: Male
  Weight: 66 kg

DRUGS (2)
  1. CISPLATIN [Suspect]
     Indication: SINUS DISORDER
     Dosage: 100MG/M2 IV Q21DAYS
     Route: 042
     Dates: start: 20081021
  2. CETUXIMAB [Suspect]
     Indication: SINUS DISORDER
     Dosage: 250MG/M2 IV Q WEEK
     Route: 042
     Dates: start: 20080813, end: 20081110

REACTIONS (2)
  - BACILLUS INFECTION [None]
  - BACTERAEMIA [None]
